FAERS Safety Report 10185074 (Version 1)
Quarter: 2014Q2

REPORT INFORMATION
  Report Type: Report from Study
  Country: CN (occurrence: CN)
  Receive Date: 20140521
  Receipt Date: 20140521
  Transmission Date: 20141212
  Serious: Yes (Death)
  Sender: FDA-Public Use
  Company Number: CN-ROCHE-1404586

PATIENT
  Sex: Female
  Weight: 60 kg

DRUGS (2)
  1. AVASTIN [Suspect]
     Indication: RECTAL CANCER
     Route: 042
     Dates: start: 20131128
  2. AVASTIN [Suspect]
     Indication: METASTASES TO LIVER

REACTIONS (2)
  - Cardiac failure [Fatal]
  - Vomiting [Unknown]
